FAERS Safety Report 17318615 (Version 6)
Quarter: 2025Q4

REPORT INFORMATION
  Report Type: Spontaneous
  Country: EU (occurrence: EU)
  Receive Date: 20200124
  Receipt Date: 20251216
  Transmission Date: 20260118
  Serious: Yes (Death, Hospitalization, Other)
  Sender: NOVARTIS
  Company Number: None

PATIENT
  Age: 35 Year
  Sex: Male
  Weight: 112 kg

DRUGS (7)
  1. KYMRIAH [Suspect]
     Active Substance: TISAGENLECLEUCEL
     Indication: Diffuse large B-cell lymphoma
     Dosage: 2 DF (400000000 CTL019 CELLS/DOSE) DOSIS ?NICA
     Route: 042
     Dates: start: 20190826, end: 20190826
  2. GEMCITABINE [Concomitant]
     Active Substance: GEMCITABINE
     Indication: Chemotherapy
     Dosage: UNK
     Route: 065
  3. RITUXIMAB [Concomitant]
     Active Substance: RITUXIMAB
     Indication: Chemotherapy
     Dosage: UNK
     Route: 065
  4. OXALIPLATIN [Concomitant]
     Active Substance: OXALIPLATIN
     Indication: Chemotherapy
     Dosage: UNK
     Route: 065
  5. FLUDARABINE [Concomitant]
     Active Substance: FLUDARABINE PHOSPHATE
     Indication: Chemotherapy
     Dosage: UNK
     Route: 065
  6. CYCLOPHOSPHAMIDE [Concomitant]
     Active Substance: CYCLOPHOSPHAMIDE
     Indication: Chemotherapy
     Dosage: UNK
     Route: 065
  7. METHYLPREDNISOLONE [Concomitant]
     Active Substance: METHYLPREDNISOLONE
     Indication: Product used for unknown indication
     Dosage: 100 MG, Q12H
     Route: 065

REACTIONS (22)
  - Haemophagocytic lymphohistiocytosis [Fatal]
  - Neurotoxicity [Fatal]
  - Cytokine release syndrome [Fatal]
  - Pyrexia [Fatal]
  - Multiple organ dysfunction syndrome [Unknown]
  - Shock haemorrhagic [Unknown]
  - Hepatic failure [Unknown]
  - Septic shock [Unknown]
  - Rectal haemorrhage [Unknown]
  - Therapy non-responder [Unknown]
  - Febrile neutropenia [Unknown]
  - Cytopenia [Unknown]
  - Malignant neoplasm progression [Not Recovered/Not Resolved]
  - Diffuse large B-cell lymphoma [Not Recovered/Not Resolved]
  - Liver function test decreased [Unknown]
  - Dysgraphia [Unknown]
  - Respiratory disorder [Not Recovered/Not Resolved]
  - Coagulopathy [Unknown]
  - Somnolence [Unknown]
  - Disturbance in attention [Unknown]
  - Serum ferritin increased [Unknown]
  - Bone marrow failure [Unknown]

NARRATIVE: CASE EVENT DATE: 20190827
